FAERS Safety Report 17050060 (Version 3)
Quarter: 2020Q1

REPORT INFORMATION
  Report Type: Spontaneous
  Country: US (occurrence: US)
  Receive Date: 20191119
  Receipt Date: 20200205
  Transmission Date: 20200409
  Serious: Yes (Other)
  Sender: FDA-Public Use
  Company Number: US-BAYER-2019-206465

PATIENT
  Age: 39 Year
  Sex: Female
  Weight: 81.65 kg

DRUGS (3)
  1. MIRENA [Suspect]
     Active Substance: LEVONORGESTREL
     Indication: MENORRHAGIA
     Dosage: 20 MCG/24HR, CONT
     Route: 015
     Dates: start: 20180625, end: 20191112
  2. MIRENA [Suspect]
     Active Substance: LEVONORGESTREL
     Indication: CONTRACEPTION
     Dosage: 20 ?G, CONT
     Route: 015
     Dates: start: 20191112
  3. MIRENA [Suspect]
     Active Substance: LEVONORGESTREL
     Indication: CONTRACEPTION
     Dosage: 20 ?G, CONT
     Route: 015
     Dates: start: 2013, end: 20180625

REACTIONS (12)
  - Procedural pain [None]
  - Urinary tract infection [None]
  - Menstruation irregular [None]
  - Pollakiuria [None]
  - Post procedural haemorrhage [None]
  - Abdominal pain lower [None]
  - Amenorrhoea [Recovered/Resolved]
  - Device expulsion [Recovered/Resolved]
  - Pelvic discomfort [None]
  - Device use error [None]
  - Device issue [None]
  - Genital haemorrhage [None]

NARRATIVE: CASE EVENT DATE: 201806
